FAERS Safety Report 6288669-0 (Version None)
Quarter: 2009Q3

REPORT INFORMATION
  Report Type: 
  Country: None (occurrence: None)
  Receive Date: 20090729
  Receipt Date: 20090716
  Transmission Date: 20100115
  Serious: Yes (Other)
  Sender: FDA-Public Use
  Company Number: US-ELI_LILLY_AND_COMPANY-US200907003371

PATIENT
  Sex: Female

DRUGS (6)
  1. FORTEO [Suspect]
     Dates: start: 20080901
  2. ATENOLOL [Concomitant]
     Indication: PALPITATIONS
  3. LIPITOR [Concomitant]
     Dosage: 10 MG, UNK
  4. GLUMETZA [Concomitant]
  5. AVANDIA /01445802/ [Concomitant]
     Indication: TYPE 2 DIABETES MELLITUS
  6. ZETIA [Concomitant]

REACTIONS (8)
  - ANAEMIA [None]
  - BLINDNESS TRANSIENT [None]
  - DIZZINESS [None]
  - MEMORY IMPAIRMENT [None]
  - MYALGIA [None]
  - RED BLOOD CELL SEDIMENTATION RATE INCREASED [None]
  - TEMPORAL ARTERITIS [None]
  - WEIGHT DECREASED [None]
